FAERS Safety Report 4682344-1 (Version None)
Quarter: 2005Q2

REPORT INFORMATION
  Report Type: 
  Country: None (occurrence: None)
  Receive Date: 20050606
  Receipt Date: 20050601
  Transmission Date: 20051028
  Serious: Yes (Hospitalization)
  Sender: FDA-Public Use
  Company Number: 200511101DE

PATIENT
  Age: 64 Year
  Sex: Female

DRUGS (3)
  1. DOCETAXEL [Suspect]
     Indication: BREAST CANCER
     Route: 042
     Dates: start: 20050525, end: 20050525
  2. DOXORUBICIN HCL [Suspect]
     Indication: BREAST CANCER
     Dates: start: 20050525, end: 20050525
  3. CYCLOPHOSPHAMIDE [Suspect]
     Indication: BREAST CANCER
     Dates: start: 20050525, end: 20050525

REACTIONS (5)
  - CARDIOVASCULAR DISORDER [None]
  - FALL [None]
  - FEBRILE NEUTROPENIA [None]
  - HUMERUS FRACTURE [None]
  - JOINT DISLOCATION [None]
